FAERS Safety Report 7632226-8 (Version None)
Quarter: 2011Q3

REPORT INFORMATION
  Report Type: 
  Country: None (occurrence: None)
  Receive Date: 20110725
  Receipt Date: 20100622
  Transmission Date: 20111222
  Serious: No
  Sender: FDA-Public Use
  Company Number: US-BRISTOL-MYERS SQUIBB COMPANY-15161565

PATIENT
  Age: 79 Year
  Sex: Female
  Weight: 77 kg

DRUGS (4)
  1. BENICAR [Concomitant]
  2. HYDROCHLOROTHIAZIDE [Concomitant]
  3. FUROSEMIDE [Concomitant]
  4. COUMADIN [Suspect]
     Dates: start: 20010101

REACTIONS (3)
  - HEADACHE [None]
  - RASH [None]
  - DIZZINESS [None]
